FAERS Safety Report 20398913 (Version 2)
Quarter: 2022Q1

REPORT INFORMATION
  Report Type: Spontaneous
  Country: US (occurrence: US)
  Receive Date: 20220131
  Receipt Date: 20220201
  Transmission Date: 20220423
  Serious: No
  Sender: FDA-Public Use
  Company Number: US-ABBVIE-21K-163-3853910-00

PATIENT
  Age: 65 Year
  Sex: Female
  Weight: 95.340 kg

DRUGS (18)
  1. HUMIRA [Suspect]
     Active Substance: ADALIMUMAB
     Indication: Choroiditis
     Route: 058
     Dates: start: 20201209
  2. HUMIRA [Suspect]
     Active Substance: ADALIMUMAB
     Indication: Uveitis
  3. PREDNISONE [Concomitant]
     Active Substance: PREDNISONE
     Indication: Eye inflammation
  4. AMLODIPINE [Concomitant]
     Active Substance: AMLODIPINE BESYLATE
     Indication: Hypertension
  5. ATENOLOL [Concomitant]
     Active Substance: ATENOLOL
     Indication: Hypertension
  6. LISINOPRIL [Concomitant]
     Active Substance: LISINOPRIL
     Indication: Hypertension
  7. DORZOLAMIDE HYDROCHLORIDE [Concomitant]
     Active Substance: DORZOLAMIDE HYDROCHLORIDE
     Indication: Intraocular pressure increased
  8. TIMOLOL MALEATE [Concomitant]
     Active Substance: TIMOLOL MALEATE
     Indication: Intraocular pressure increased
  9. CHONDROITIN SULFATE A\GLUCOSAMINE [Concomitant]
     Active Substance: CHONDROITIN SULFATE A\GLUCOSAMINE
     Indication: Arthropathy
  10. ESOMEPRAZOLE [Concomitant]
     Active Substance: ESOMEPRAZOLE
     Indication: Dyspepsia
  11. MELATONIN [Concomitant]
     Active Substance: MELATONIN
     Indication: Sleep disorder therapy
  12. CARBOXYPOLYMETHYLENE\HYALURONATE SODIUM [Concomitant]
     Active Substance: CARBOXYPOLYMETHYLENE\HYALURONATE SODIUM
     Indication: Sleep disorder therapy
  13. ARNICA MONTANA\HERBALS\HOMEOPATHICS [Concomitant]
     Active Substance: ARNICA MONTANA\HERBALS\HOMEOPATHICS
     Indication: Sleep disorder therapy
  14. COVID-19 VACCINE [Concomitant]
     Indication: COVID-19 immunisation
     Dosage: PFIZER
     Route: 030
     Dates: start: 20210308, end: 20210308
  15. COVID-19 VACCINE [Concomitant]
     Dosage: PFIZER
     Route: 030
     Dates: start: 20210331, end: 20210331
  16. CALCIUM [Concomitant]
     Active Substance: CALCIUM
     Indication: Bone disorder
  17. VITAMIN C [Concomitant]
     Active Substance: ASCORBIC ACID
     Indication: Routine health maintenance
  18. VITAMIN D3 [Concomitant]
     Active Substance: CHOLECALCIFEROL
     Indication: Vitamin supplementation

REACTIONS (4)
  - Joint swelling [Not Recovered/Not Resolved]
  - Off label use [Unknown]
  - Product storage error [Unknown]
  - Pain in extremity [Not Recovered/Not Resolved]

NARRATIVE: CASE EVENT DATE: 20210407
